FAERS Safety Report 5383368-1 (Version None)
Quarter: 2007Q3

REPORT INFORMATION
  Report Type: 
  Country: None (occurrence: None)
  Receive Date: 20070705
  Receipt Date: 20070618
  Transmission Date: 20080115
  Serious: Yes (Hospitalization)
  Sender: FDA-Public Use
  Company Number: DSA_29940_2007

PATIENT
  Sex: Female

DRUGS (2)
  1. TAVOR/00273201/(TAVOR) [Suspect]
     Indication: HYPERTENSION
     Dosage: (1 MG QD ORAL)
     Route: 048
     Dates: start: 20070126, end: 20070315
  2. METOPROLOL TARTRATE [Concomitant]

REACTIONS (11)
  - ANOSMIA [None]
  - ASTHENIA [None]
  - DISTURBANCE IN ATTENTION [None]
  - DYSGEUSIA [None]
  - GENERAL PHYSICAL HEALTH DETERIORATION [None]
  - MICTURITION URGENCY [None]
  - NAUSEA [None]
  - PALPITATIONS [None]
  - PANIC ATTACK [None]
  - VERTIGO [None]
  - WEIGHT DECREASED [None]
